FAERS Safety Report 7905780-6 (Version None)
Quarter: 2011Q4

REPORT INFORMATION
  Report Type: 
  Country: None (occurrence: None)
  Receive Date: 20111110
  Receipt Date: 20111031
  Transmission Date: 20120403
  Serious: Yes (Life-Threatening, Hospitalization)
  Sender: FDA-Public Use
  Company Number: US-JNJFOC-20111013502

PATIENT
  Age: 65 Year
  Sex: Male
  Weight: 136.08 kg

DRUGS (1)
  1. REMICADE [Suspect]
     Indication: ANKYLOSING SPONDYLITIS
     Route: 042
     Dates: start: 20110101

REACTIONS (5)
  - DIABETES MELLITUS [None]
  - INFECTION [None]
  - GALLBLADDER DISORDER [None]
  - CYSTITIS [None]
  - RENAL FAILURE [None]
